FAERS Safety Report 25530123 (Version 3)
Quarter: 2025Q3

REPORT INFORMATION
  Report Type: Spontaneous
  Country: JP (occurrence: JP)
  Receive Date: 20250708
  Receipt Date: 20250926
  Transmission Date: 20251020
  Serious: Yes (Other)
  Sender: ELI LILLY AND COMPANY
  Company Number: JP-ELI_LILLY_AND_COMPANY-JP202507005308

PATIENT
  Age: 81 Year
  Sex: Female

DRUGS (2)
  1. KISUNLA [Suspect]
     Active Substance: DONANEMAB-AZBT
     Indication: Dementia
     Route: 041
     Dates: start: 20250502
  2. DONEPEZIL [Concomitant]
     Active Substance: DONEPEZIL
     Indication: Dementia
     Route: 048
     Dates: start: 20250310

REACTIONS (3)
  - Pneumothorax [Recovering/Resolving]
  - Lung neoplasm malignant [Unknown]
  - Lung opacity [Unknown]

NARRATIVE: CASE EVENT DATE: 20250704
